FAERS Safety Report 6790052-6 (Version None)
Quarter: 2010Q2

REPORT INFORMATION
  Report Type: 
  Country: None (occurrence: None)
  Receive Date: 20100624
  Receipt Date: 20100622
  Transmission Date: 20101027
  Serious: Yes (Death)
  Sender: FDA-Public Use
  Company Number: PHHY2010IN40428

PATIENT
  Age: 44 Year
  Sex: Female

DRUGS (1)
  1. FEMARA [Suspect]
     Dosage: 1 DF, QD
     Route: 048

REACTIONS (2)
  - BRAIN NEOPLASM [None]
  - MALIGNANT NEOPLASM PROGRESSION [None]
